FAERS Safety Report 6004295-2 (Version None)
Quarter: 2008Q4

REPORT INFORMATION
  Report Type: 
  Country: None (occurrence: None)
  Receive Date: 20081216
  Receipt Date: 20081216
  Transmission Date: 20090506
  Serious: Yes (Other)
  Sender: FDA-Public Use
  Company Number: None

PATIENT
  Age: 52 Year
  Sex: Female
  Weight: 86.1834 kg

DRUGS (1)
  1. ACTONEL [Suspect]
     Indication: OSTEOPOROSIS
     Dosage: 1 SAME PACKET PILL ONCE A MONTH PO
     Route: 048
     Dates: start: 20081126, end: 20081126

REACTIONS (7)
  - ARTHRALGIA [None]
  - BACK PAIN [None]
  - DRUG TOXICITY [None]
  - EAR PAIN [None]
  - NECK PAIN [None]
  - PAIN IN EXTREMITY [None]
  - PAIN IN JAW [None]
